FAERS Safety Report 7658084-3 (Version None)
Quarter: 2011Q3

REPORT INFORMATION
  Report Type: 
  Country: None (occurrence: None)
  Receive Date: 20110805
  Receipt Date: 20110801
  Transmission Date: 20111222
  Serious: Yes (Disabling, Other)
  Sender: FDA-Public Use
  Company Number: US-BAYER-2011-068390

PATIENT
  Sex: Female

DRUGS (2)
  1. YAZ [Suspect]
     Dosage: UNK
     Dates: start: 20060801, end: 20090901
  2. YASMIN [Suspect]
     Dosage: UNK
     Dates: start: 20060801, end: 20090901

REACTIONS (4)
  - DEFORMITY [None]
  - GALLBLADDER DISORDER [None]
  - INJURY [None]
  - PAIN [None]
